FAERS Safety Report 5554955-2 (Version None)
Quarter: 2007Q4

REPORT INFORMATION
  Report Type: 
  Country: None (occurrence: None)
  Receive Date: 20071213
  Receipt Date: 20071204
  Transmission Date: 20080405
  Serious: Yes (Other)
  Sender: FDA-Public Use
  Company Number: JP-ASTRAZENECA-2007AP06760

PATIENT
  Age: 8 Month
  Sex: Female
  Weight: 8.8 kg

DRUGS (12)
  1. MEROPENEM [Suspect]
     Indication: MENINGITIS BACTERIAL
     Route: 042
     Dates: start: 20050328, end: 20050411
  2. MEROPEN [Concomitant]
     Indication: MENINGITIS BACTERIAL
     Route: 042
     Dates: start: 20050327, end: 20050327
  3. FIRSTCIN [Concomitant]
     Indication: MENINGITIS BACTERIAL
     Route: 042
     Dates: start: 20050327, end: 20050327
  4. ORGADRON [Concomitant]
     Indication: MENINGITIS BACTERIAL
     Route: 040
     Dates: start: 20050327, end: 20050327
  5. ORGADRON [Concomitant]
     Route: 040
     Dates: start: 20050328, end: 20050329
  6. GLYCEOL [Concomitant]
     Indication: MENINGITIS BACTERIAL
     Route: 041
     Dates: start: 20050327, end: 20050402
  7. GASTER [Concomitant]
     Indication: MENINGITIS BACTERIAL
     Route: 040
     Dates: start: 20050327, end: 20050403
  8. VEEN 3G [Concomitant]
     Indication: MENINGITIS BACTERIAL
     Dosage: 20 ML/H
     Route: 041
     Dates: start: 20050327, end: 20050411
  9. UNKNOWN [Concomitant]
     Indication: MENINGITIS BACTERIAL
     Route: 041
     Dates: start: 20050327, end: 20050411
  10. WAKOBITAL [Concomitant]
     Indication: MENINGITIS BACTERIAL
     Route: 054
     Dates: start: 20050327, end: 20050405
  11. FLORID [Concomitant]
     Indication: MENINGITIS BACTERIAL
     Route: 007
     Dates: start: 20050328, end: 20050402
  12. RESTAMIN [Concomitant]
     Indication: MENINGITIS BACTERIAL
     Dates: start: 20050329, end: 20050330

REACTIONS (4)
  - ALANINE AMINOTRANSFERASE INCREASED [None]
  - ASPARTATE AMINOTRANSFERASE INCREASED [None]
  - GAMMA-GLUTAMYLTRANSFERASE INCREASED [None]
  - LIVER DISORDER [None]
